FAERS Safety Report 18557944 (Version 2)
Quarter: 2021Q1

REPORT INFORMATION
  Report Type: Spontaneous
  Country: DE (occurrence: DE)
  Receive Date: 20201130
  Receipt Date: 20210112
  Transmission Date: 20210419
  Serious: Yes (Life-Threatening, Hospitalization, Other)
  Sender: FDA-Public Use
  Company Number: DE-AUROBINDO-AUR-APL-2020-058542

PATIENT
  Age: 41 Year
  Sex: Male

DRUGS (2)
  1. DULOXETINE. [Suspect]
     Active Substance: DULOXETINE
     Indication: DEPRESSION
     Dosage: 60 MILLIGRAM, ONCE A DAY
     Route: 065
  2. DULOXETINE. [Suspect]
     Active Substance: DULOXETINE
     Dosage: 30 MILLIGRAM, ONCE A DAY
     Route: 065

REACTIONS (18)
  - Hypokalaemia [Recovering/Resolving]
  - Systemic inflammatory response syndrome [Recovering/Resolving]
  - Serotonin syndrome [Recovered/Resolved]
  - Hyperventilation [Recovering/Resolving]
  - Agitation [Recovering/Resolving]
  - Condition aggravated [Recovering/Resolving]
  - Toxicity to various agents [Recovering/Resolving]
  - Nervousness [Recovering/Resolving]
  - Vomiting [Recovering/Resolving]
  - Supraventricular tachycardia [Recovering/Resolving]
  - Gait disturbance [Recovering/Resolving]
  - Myoclonus [Recovering/Resolving]
  - Hyperhidrosis [Recovering/Resolving]
  - Polyneuropathy [Recovering/Resolving]
  - Ataxia [Recovering/Resolving]
  - Dizziness [Recovering/Resolving]
  - Psychomotor hyperactivity [Recovering/Resolving]
  - Blood creatinine increased [Recovering/Resolving]

NARRATIVE: CASE EVENT DATE: 201710
